FAERS Safety Report 8172203-4 (Version None)
Quarter: 2012Q1

REPORT INFORMATION
  Report Type: 
  Country: None (occurrence: None)
  Receive Date: 20120228
  Receipt Date: 20120216
  Transmission Date: 20120608
  Serious: Yes (Other)
  Sender: FDA-Public Use
  Company Number: BR-TEVA-2011002315

PATIENT
  Sex: Female
  Weight: 82.8 kg

DRUGS (5)
  1. CYCLOPHOSPHAMIDE [Suspect]
     Route: 042
     Dates: start: 20101015, end: 20110311
  2. BENDAMUSTINE [Suspect]
  3. ADRIAMYCIN PFS [Suspect]
     Route: 042
     Dates: start: 20101015, end: 20110311
  4. VINCRISTINE [Suspect]
     Route: 042
     Dates: start: 20101015, end: 20110311
  5. CAPTOPRIL [Concomitant]
     Indication: HYPERTENSION
     Route: 048
     Dates: start: 20070101

REACTIONS (2)
  - VENTRICULAR DYSFUNCTION [None]
  - MITRAL VALVE INCOMPETENCE [None]
